FAERS Safety Report 7557288-8 (Version None)
Quarter: 2011Q2

REPORT INFORMATION
  Report Type: 
  Country: None (occurrence: None)
  Receive Date: 20110620
  Receipt Date: 20080616
  Transmission Date: 20111010
  Serious: Yes (Death)
  Sender: FDA-Public Use
  Company Number: PHHY2008DE37519

PATIENT
  Sex: Male
  Weight: 64 kg

DRUGS (8)
  1. SANDOSTATIN LAR [Suspect]
     Indication: NEUROENDOCRINE TUMOUR
     Dosage: 30 MG, UNK
     Route: 030
     Dates: start: 20070313
  2. KEVATRIL [Concomitant]
  3. DURAGESIC-100 [Concomitant]
  4. METOPROLOL SUCCINATE [Concomitant]
  5. PRAMIPEXOLE DIHYDROCHLORIDE [Concomitant]
  6. TORSEMIDE [Concomitant]
  7. SANDOSTATIN [Suspect]
     Indication: NEUROENDOCRINE TUMOUR
  8. LEVOTHYROXINE SODIUM [Concomitant]

REACTIONS (4)
  - FLUSHING [None]
  - DEATH [None]
  - NAUSEA [None]
  - VOMITING [None]
